FAERS Safety Report 6858316-5 (Version None)
Quarter: 2010Q3

REPORT INFORMATION
  Report Type: 
  Country: None (occurrence: None)
  Receive Date: 20100719
  Receipt Date: 20080327
  Transmission Date: 20110219
  Serious: No
  Sender: FDA-Public Use
  Company Number: US-PFIZER INC-2008012170

PATIENT
  Sex: Female
  Weight: 79.4 kg

DRUGS (5)
  1. CHANTIX [Suspect]
     Indication: SMOKING CESSATION THERAPY
     Dates: start: 20080101
  2. ARTHROTEC [Concomitant]
     Indication: ARTHRITIS
  3. OSCAL [Concomitant]
  4. NEXIUM [Concomitant]
  5. FOSAMAX [Concomitant]

REACTIONS (2)
  - GALLBLADDER DISORDER [None]
  - NAUSEA [None]
